FAERS Safety Report 9816300 (Version 1)
Quarter: 2014Q1

REPORT INFORMATION
  Report Type: Spontaneous
  Country: US (occurrence: US)
  Receive Date: 20140114
  Receipt Date: 20140114
  Transmission Date: 20141002
  Serious: Yes (Other)
  Sender: FDA-Public Use
  Company Number: US-RB-061745-14

PATIENT
  Sex: Male

DRUGS (7)
  1. MUCINEX MAXIMUM STRENGTH [Suspect]
     Indication: UPPER-AIRWAY COUGH SYNDROME
     Dosage: 2 PER DAY
     Route: 048
  2. MUCINEX MAXIMUM STRENGTH [Suspect]
     Indication: UPPER-AIRWAY COUGH SYNDROME
     Dosage: 2 PER DAY
     Route: 048
  3. MUCINEX MAXIMUM STRENGTH [Suspect]
     Indication: LOWER RESPIRATORY TRACT INFECTION
     Dosage: 2 PER DAY
     Route: 048
  4. MYCARDIS [Concomitant]
     Indication: PRODUCT USED FOR UNKNOWN INDICATION
  5. ADAVASTIN [Concomitant]
     Indication: PRODUCT USED FOR UNKNOWN INDICATION
  6. Q-VAR INHALER [Concomitant]
     Indication: PRODUCT USED FOR UNKNOWN INDICATION
  7. ANTIBIOTIC [Concomitant]
     Indication: PRODUCT USED FOR UNKNOWN INDICATION
     Dosage: FOR APPROXIMATELY A MONTH

REACTIONS (4)
  - Anxiety [Not Recovered/Not Resolved]
  - Insomnia [Not Recovered/Not Resolved]
  - Off label use [Not Recovered/Not Resolved]
  - Incorrect drug administration duration [Not Recovered/Not Resolved]
